FAERS Safety Report 6407434-4 (Version None)
Quarter: 2009Q4

REPORT INFORMATION
  Report Type: 
  Country: None (occurrence: None)
  Receive Date: 20091020
  Receipt Date: 20091014
  Transmission Date: 20100525
  Serious: Yes (Hospitalization, Disabling, Other)
  Sender: FDA-Public Use
  Company Number: US-MERCK-0809USA04446

PATIENT
  Age: 74 Year
  Sex: Female
  Weight: 85 kg

DRUGS (5)
  1. FOSAMAX [Suspect]
     Indication: OSTEOPOROSIS
     Route: 048
     Dates: start: 20010501, end: 20021001
  2. FOSAMAX [Suspect]
     Route: 048
     Dates: start: 19950101
  3. [THERAPY UNSPECIFIED] [Concomitant]
     Indication: HYPERTENSION
     Route: 065
  4. ACTONEL [Suspect]
     Route: 065
     Dates: start: 20021001
  5. BONIVA [Suspect]
     Route: 048
     Dates: start: 20050101, end: 20080101

REACTIONS (50)
  - ABDOMINAL DISCOMFORT [None]
  - ADVERSE DRUG REACTION [None]
  - ANAEMIA [None]
  - ANXIETY [None]
  - ASTHMA [None]
  - BREAST DISORDER [None]
  - BREATH ODOUR [None]
  - BRONCHITIS [None]
  - CATARACT [None]
  - CELLULITIS [None]
  - CHRONIC OBSTRUCTIVE PULMONARY DISEASE [None]
  - CONSTIPATION [None]
  - DEPRESSION [None]
  - DIABETES MELLITUS [None]
  - DIARRHOEA [None]
  - DRUG HYPERSENSITIVITY [None]
  - DRY MOUTH [None]
  - DUODENITIS [None]
  - DYSPEPSIA [None]
  - EATING DISORDER [None]
  - EPISTAXIS [None]
  - FACIAL PALSY [None]
  - GALLBLADDER DISORDER [None]
  - GASTRITIS [None]
  - GASTROOESOPHAGEAL REFLUX DISEASE [None]
  - HIATUS HERNIA [None]
  - HYPERCOAGULATION [None]
  - HYPERGLYCAEMIA [None]
  - HYPERLIPIDAEMIA [None]
  - INFECTION [None]
  - JAW DISORDER [None]
  - MYOCARDIAL ISCHAEMIA [None]
  - NOCTURIA [None]
  - OSTEOARTHRITIS [None]
  - OSTEOMYELITIS [None]
  - OSTEONECROSIS [None]
  - PAIN IN EXTREMITY [None]
  - PANCREATITIS ACUTE [None]
  - PEPTIC ULCER [None]
  - POST PROCEDURAL INFECTION [None]
  - PULPITIS DENTAL [None]
  - RETINAL VEIN OCCLUSION [None]
  - RHEUMATOID ARTHRITIS [None]
  - STREPTOCOCCAL INFECTION [None]
  - TENDON RUPTURE [None]
  - THROMBOSIS [None]
  - TOOTH DISORDER [None]
  - TOOTH FRACTURE [None]
  - UMBILICAL HERNIA [None]
  - URINARY TRACT INFECTION [None]
